FAERS Safety Report 7465580-0 (Version None)
Quarter: 2011Q2

REPORT INFORMATION
  Report Type: 
  Country: None (occurrence: None)
  Receive Date: 20110509
  Receipt Date: 20110503
  Transmission Date: 20111010
  Serious: Yes (Death, Hospitalization)
  Sender: FDA-Public Use
  Company Number: US-BAYER-2011-021578

PATIENT
  Age: 53 Year
  Sex: Male
  Weight: 61.587 kg

DRUGS (14)
  1. LOPERAMIDE HCL [Concomitant]
     Dosage: 2 MG, PRN Q 1 HR PRN
  2. FOSAMPRENAVIR [Concomitant]
     Dosage: 700 MG, BID WITH FOOD
     Route: 048
  3. LISINOPRIL [Concomitant]
     Dosage: 2.5 MG, QD
     Route: 048
  4. LACTULOSE [Concomitant]
     Dosage: 10GM/15ML 2 TBLSP.
  5. BACLOFEN [Concomitant]
     Indication: HICCUPS
     Dosage: 10 MG, PRN Q 4 HR.
     Route: 048
  6. VARDENAFIL [Concomitant]
     Dosage: 20 MG, PRN 1/2 TAB
     Route: 048
  7. UREA [Concomitant]
     Dosage: UNK UNK, BID
     Route: 061
  8. NEXAVAR [Suspect]
     Indication: HEPATIC NEOPLASM MALIGNANT
     Dosage: UNK
     Route: 048
     Dates: start: 20110202, end: 20110215
  9. OMEPRAZOLE [Concomitant]
     Dosage: 20 MG, BID
     Route: 048
  10. DAPSONE [Concomitant]
     Dosage: 100 MG, QD
     Route: 048
  11. BUPROPION HYDROCHLORIDE [Concomitant]
     Dosage: 100 MG, BID
     Route: 048
  12. ENSURE [MINERALS NOS,VITAMINS NOS] [Concomitant]
     Indication: MEDICAL DIET
     Dosage: 1 DF, TID
     Route: 048
  13. RITONAVIR [Concomitant]
     Dosage: 100 MG, BID WITH FOOD
     Route: 048
  14. TRUVADA [Concomitant]
     Dosage: 1 DF, QD

REACTIONS (8)
  - PARAESTHESIA [None]
  - ACUTE RESPIRATORY DISTRESS SYNDROME [None]
  - PANCREATITIS [None]
  - ABDOMINAL PAIN [None]
  - BLOOD AMYLASE INCREASED [None]
  - PYREXIA [None]
  - LIPASE INCREASED [None]
  - PNEUMONIA [None]
